FAERS Safety Report 7487275-X (Version None)
Quarter: 2011Q2

REPORT INFORMATION
  Report Type: 
  Country: None (occurrence: None)
  Receive Date: 20110518
  Receipt Date: 20110411
  Transmission Date: 20111010
  Serious: Yes (Other)
  Sender: FDA-Public Use
  Company Number: US-BAYER-201040437NA

PATIENT
  Age: 27 Year
  Sex: Female
  Weight: 61 kg

DRUGS (4)
  1. ADVIL LIQUI-GELS [Concomitant]
     Dosage: UNK
     Dates: start: 19900101
  2. DROSPIRENONE AND ETHINYL ESTRADIOL [Suspect]
     Indication: PRODUCT USED FOR UNKNOWN INDICATION
  3. YASMIN [Suspect]
     Dosage: UNK
     Dates: start: 20050101, end: 20060101
  4. YAZ [Suspect]
     Dosage: UNK
     Dates: start: 20090601

REACTIONS (6)
  - GALLBLADDER DISORDER [None]
  - INJURY [None]
  - PALPITATIONS [None]
  - BILIARY DYSKINESIA [None]
  - CHEST PAIN [None]
  - CHOLECYSTITIS CHRONIC [None]
